FAERS Safety Report 19602001 (Version 2)
Quarter: 2021Q3

REPORT INFORMATION
  Report Type: Report from Study
  Country: CA (occurrence: CA)
  Receive Date: 20210722
  Receipt Date: 20210802
  Transmission Date: 20211014
  Serious: Yes (Other)
  Sender: FDA-Public Use
  Company Number: CA-BEH-2021133153

PATIENT
  Age: 28 Year
  Sex: Female
  Weight: 77.6 kg

DRUGS (10)
  1. SYMBICORT [Concomitant]
     Active Substance: BUDESONIDE\FORMOTEROL FUMARATE DIHYDRATE
  2. BERINERT [Suspect]
     Active Substance: HUMAN C1-ESTERASE INHIBITOR
     Indication: HEREDITARY ANGIOEDEMA WITH NORMAL C1 ESTERASE INHIBITOR
     Dosage: 3000 INTERNATIONAL UNIT, PRN
     Route: 042
     Dates: start: 20210415
  3. BERINERT [Suspect]
     Active Substance: HUMAN C1-ESTERASE INHIBITOR
     Indication: HEREDITARY ANGIOEDEMA WITH NORMAL C1 ESTERASE INHIBITOR
     Dosage: 3000 INTERNATIONAL UNIT, PRN
     Route: 042
     Dates: start: 20210415
  4. BERINERT [Suspect]
     Active Substance: HUMAN C1-ESTERASE INHIBITOR
     Dosage: 3000 INTERNATIONAL UNIT, TOT
     Route: 042
     Dates: start: 202107, end: 202107
  5. HAEGARDA [Suspect]
     Active Substance: HUMAN C1-ESTERASE INHIBITOR
     Indication: PROPHYLAXIS
  6. REACTINE [CETIRIZINE HYDROCHLORIDE] [Concomitant]
     Active Substance: CETIRIZINE HYDROCHLORIDE
     Dosage: 40 MILLIGRAM, BID
     Route: 048
  7. BERINERT [Suspect]
     Active Substance: HUMAN C1-ESTERASE INHIBITOR
     Dosage: 3000 INTERNATIONAL UNIT, TOT
     Route: 042
     Dates: start: 202107, end: 202107
  8. HAEGARDA [Suspect]
     Active Substance: HUMAN C1-ESTERASE INHIBITOR
     Indication: HEREDITARY ANGIOEDEMA WITH NORMAL C1 ESTERASE INHIBITOR
     Dosage: 4000 INTERNATIONAL UNIT, BIW
     Route: 058
     Dates: start: 20210528
  9. BERINERT [Suspect]
     Active Substance: HUMAN C1-ESTERASE INHIBITOR
     Dosage: UNK
     Route: 042
     Dates: start: 20210628
  10. BERINERT [Suspect]
     Active Substance: HUMAN C1-ESTERASE INHIBITOR
     Dosage: UNK
     Route: 042
     Dates: start: 20210628

REACTIONS (31)
  - Hypersensitivity [Unknown]
  - Hereditary angioedema [Unknown]
  - Rash [Unknown]
  - Therapeutic product effect incomplete [Unknown]
  - Pain in jaw [Unknown]
  - Balance disorder [Unknown]
  - Swelling [Unknown]
  - Foot fracture [Unknown]
  - Hereditary angioedema [Unknown]
  - Oropharyngeal discomfort [Unknown]
  - Hereditary angioedema [Unknown]
  - No adverse event [Unknown]
  - Swelling face [Unknown]
  - Fatigue [Unknown]
  - Pruritus [Unknown]
  - Dyspnoea [Unknown]
  - Headache [Unknown]
  - Hereditary angioedema [Unknown]
  - Stress [Unknown]
  - Abdominal pain [Unknown]
  - Facial pain [Unknown]
  - Limb injury [Unknown]
  - Somnolence [Unknown]
  - Hereditary angioedema [Unknown]
  - Feeling drunk [Unknown]
  - Pain in extremity [Unknown]
  - Palpitations [Unknown]
  - Off label use [Unknown]
  - Sunburn [Recovering/Resolving]
  - Musculoskeletal stiffness [Unknown]
  - Ear pain [Unknown]

NARRATIVE: CASE EVENT DATE: 20210616
